FAERS Safety Report 20289080 (Version 1)
Quarter: 2022Q1

REPORT INFORMATION
  Report Type: Spontaneous
  Country: US (occurrence: US)
  Receive Date: 20220104
  Receipt Date: 20220104
  Transmission Date: 20220424
  Serious: No
  Sender: FDA-Public Use
  Company Number: US-TEVA-2021-US-1989332

PATIENT
  Age: 42 Year
  Sex: Male

DRUGS (1)
  1. AUSTEDO [Suspect]
     Active Substance: DEUTETRABENAZINE
     Indication: Tardive dyskinesia
     Dosage: 24 MILLIGRAM DAILY; STARTED: 2 MONTHS
     Route: 065
     Dates: start: 202110

REACTIONS (1)
  - Drug ineffective [Unknown]

NARRATIVE: CASE EVENT DATE: 20211201
